FAERS Safety Report 5942774-4 (Version None)
Quarter: 2008Q4

REPORT INFORMATION
  Report Type: 
  Country: None (occurrence: None)
  Receive Date: 20081103
  Receipt Date: 20081020
  Transmission Date: 20090506
  Serious: Yes (Hospitalization)
  Sender: FDA-Public Use
  Company Number: DSA_32566_2008

PATIENT
  Sex: Female

DRUGS (2)
  1. TAVOR /00273201/ 1 MG (NOT SPECIFIED) [Suspect]
     Dosage: (20 MG QD, NOT THE PRESCRIBED AMOUNT ORAL)
     Route: 048
     Dates: start: 20081017, end: 20081017
  2. SEROQUEL [Suspect]
     Dosage: (A FEW TABLETS NOT THE PRESCRIBED AMOUNT ORAL)
     Route: 048
     Dates: start: 20081017, end: 20081017

REACTIONS (6)
  - BRADYCARDIA [None]
  - DEHYDRATION [None]
  - MULTIPLE DRUG OVERDOSE INTENTIONAL [None]
  - SOMNOLENCE [None]
  - SUICIDE ATTEMPT [None]
  - SUPRAVENTRICULAR EXTRASYSTOLES [None]
